FAERS Safety Report 8472353-9 (Version None)
Quarter: 2012Q2

REPORT INFORMATION
  Report Type: 
  Country: None (occurrence: None)
  Receive Date: 20120627
  Receipt Date: 20110717
  Transmission Date: 20120825
  Serious: No
  Sender: FDA-Public Use
  Company Number: US-AMGEN-USASP2011036287

PATIENT
  Age: 58 Year
  Sex: Female

DRUGS (2)
  1. CYCLOSPORINE [Concomitant]
     Dosage: UNK
  2. EPOGEN [Suspect]
     Indication: PSORIASIS
     Dosage: 50 MG, Q2WK
     Dates: start: 20110602

REACTIONS (4)
  - BLOOD PRESSURE INCREASED [None]
  - PSORIASIS [None]
  - CELLULITIS [None]
  - RASH MACULO-PAPULAR [None]
